FAERS Safety Report 5512184-2 (Version None)
Quarter: 2007Q4

REPORT INFORMATION
  Report Type: 
  Country: None (occurrence: None)
  Receive Date: 20071112
  Receipt Date: 20071107
  Transmission Date: 20080405
  Serious: Yes (Death)
  Sender: FDA-Public Use
  Company Number: PHHO2007BR18600

PATIENT
  Age: 79 Year
  Sex: Female

DRUGS (1)
  1. GALVUS MET [Suspect]
     Dosage: 10/500 MG
     Route: 048

REACTIONS (1)
  - MULTI-ORGAN FAILURE [None]
